FAERS Safety Report 23940641 (Version 1)
Quarter: 2024Q2

REPORT INFORMATION
  Report Type: Spontaneous
  Country: BE (occurrence: BE)
  Receive Date: 20240605
  Receipt Date: 20240605
  Transmission Date: 20240715
  Serious: Yes (Hospitalization, Other)
  Sender: FDA-Public Use
  Company Number: BE-ALKEM LABORATORIES LIMITED-BE-ALKEM-2024-06515

PATIENT
  Age: 57 Year
  Sex: Male

DRUGS (12)
  1. MYCOPHENOLATE MOFETIL [Suspect]
     Active Substance: MYCOPHENOLATE MOFETIL
     Indication: Immunosuppressant drug therapy
     Dosage: 500 MILLIGRAM, BID
     Route: 065
  2. MYCOPHENOLATE MOFETIL [Suspect]
     Active Substance: MYCOPHENOLATE MOFETIL
     Dosage: 250 MILLIGRAM, BID (REDUCTION DOSE)
     Route: 065
  3. TACROLIMUS [Suspect]
     Active Substance: TACROLIMUS
     Indication: Immunosuppressant drug therapy
     Dosage: 17 MILLIGRAM, OD
     Route: 065
  4. TACROLIMUS [Suspect]
     Active Substance: TACROLIMUS
     Dosage: 8 MILLIGRAM, QD (REDUCTION DOSE)
     Route: 065
  5. METHYLPREDNISOLONE [Suspect]
     Active Substance: METHYLPREDNISOLONE
     Indication: Immunosuppressant drug therapy
     Dosage: 4 MILLIGRAM, OD
     Route: 065
  6. METHYLPREDNISOLONE [Suspect]
     Active Substance: METHYLPREDNISOLONE
     Dosage: 40 MILLIGRAM, BID
     Route: 042
  7. VANCOMYCIN [Suspect]
     Active Substance: VANCOMYCIN
     Indication: Rhodococcus infection
     Dosage: UNK
     Route: 042
  8. VANCOMYCIN [Suspect]
     Active Substance: VANCOMYCIN
     Indication: Sepsis
  9. MEROPENEM [Suspect]
     Active Substance: MEROPENEM
     Indication: Rhodococcus infection
     Dosage: 1 GRAM, TID
     Route: 042
  10. MEROPENEM [Suspect]
     Active Substance: MEROPENEM
     Indication: Sepsis
  11. AMOXICILLIN\CLAVULANIC ACID [Concomitant]
     Active Substance: AMOXICILLIN\CLAVULANIC ACID
     Indication: Evidence based treatment
     Dosage: 2 GRAM, BID
     Route: 048
  12. HEPARIN [Concomitant]
     Active Substance: HEPARIN SODIUM
     Indication: Haemoptysis
     Dosage: UNK
     Route: 065

REACTIONS (6)
  - Sepsis [Recovered/Resolved]
  - Rhodococcus infection [Recovered/Resolved]
  - Pneumocystis jirovecii pneumonia [Recovered/Resolved]
  - Aspergillus infection [Recovered/Resolved]
  - Condition aggravated [Unknown]
  - Drug ineffective [Unknown]
